FAERS Safety Report 23848967 (Version 1)
Quarter: 2024Q2

REPORT INFORMATION
  Report Type: Spontaneous
  Country: CA (occurrence: CA)
  Receive Date: 20240513
  Receipt Date: 20240513
  Transmission Date: 20240716
  Serious: Yes (Disabling, Other)
  Sender: FDA-Public Use
  Company Number: CA-PFIZER INC-202400105128

PATIENT
  Age: 53 Year
  Sex: Male

DRUGS (1)
  1. ABRILADA [Suspect]
     Active Substance: ADALIMUMAB-AFZB
     Indication: Crohn^s disease
     Dosage: 40 MG, WEEKLY (PREFILLED PEN)
     Route: 058
     Dates: start: 20220414

REACTIONS (2)
  - Bipolar disorder [Unknown]
  - Disease recurrence [Unknown]
